FAERS Safety Report 8808987 (Version 1)
Quarter: 2012Q4

REPORT INFORMATION
  Report Type: 
  Country: IT (occurrence: IT)
  Receive Date: 20120926
  Receipt Date: 20120926
  Transmission Date: 20130627
  Serious: Yes (Hospitalization, Other)
  Sender: FDA-Public Use
  Company Number: IT-BRISTOL-MYERS SQUIBB COMPANY-16891723

PATIENT
  Age: 84 Year
  Sex: Male

DRUGS (6)
  1. COUMADIN [Suspect]
     Indication: ATRIAL FIBRILLATION
     Route: 048
     Dates: start: 20030101, end: 20111128
  2. OMEPRAZOL [Concomitant]
     Route: 048
  3. CORDARONE [Concomitant]
     Dosage: Tabs
     Route: 048
  4. LASIX [Concomitant]
     Dosage: Tabs
     Route: 048
  5. FOLINA [Concomitant]
     Indication: ANAEMIA
     Dosage: Caps
  6. SEROQUEL [Concomitant]
     Dosage: Tabs
     Route: 048

REACTIONS (4)
  - Haematuria [Recovered/Resolved]
  - Rectal haemorrhage [Recovered/Resolved]
  - Syncope [Unknown]
  - Hypocoagulable state [Unknown]
